FAERS Safety Report 8286822-8 (Version None)
Quarter: 2012Q2

REPORT INFORMATION
  Report Type: 
  Country: None (occurrence: None)
  Receive Date: 20120416
  Receipt Date: 20120412
  Transmission Date: 20120825
  Serious: Yes (Death, Life-Threatening, Hospitalization)
  Sender: FDA-Public Use
  Company Number: DE-B.I. PHARMACEUTICALS,INC./RIDGEFIELD-2012-DE-00784DE

PATIENT
  Sex: Female

DRUGS (8)
  1. BERLTHYROX 50 [Concomitant]
     Dosage: 1 ANZ
  2. XIPAMID 10 [Concomitant]
     Dosage: 1 ANZ
  3. PRADAXA [Suspect]
     Indication: ATRIAL FIBRILLATION
     Dosage: 220 MG
     Route: 048
     Dates: start: 20111101, end: 20120316
  4. PRADAXA [Suspect]
     Indication: INTRACARDIAC THROMBUS
  5. DIGITOXIN TAB [Concomitant]
     Dosage: 1 ANZ
  6. BETORIN [Concomitant]
     Dosage: 3 ANZ
  7. METOPROLOL SUCCINATE [Concomitant]
     Dosage: 2 ANZ
  8. SAROLIN [Concomitant]
     Dosage: 1 ANZ

REACTIONS (18)
  - PULMONARY EMBOLISM [None]
  - HAEMOGLOBIN DECREASED [None]
  - CREATININE RENAL CLEARANCE DECREASED [None]
  - BLOOD URINE PRESENT [None]
  - CONDITION AGGRAVATED [None]
  - MYOCARDIAL INFARCTION [None]
  - HAEMATOCRIT DECREASED [None]
  - INTERNATIONAL NORMALISED RATIO INCREASED [None]
  - HAEMATURIA [None]
  - PULMONARY HAEMORRHAGE [None]
  - PROTHROMBIN TIME PROLONGED [None]
  - BLOOD CREATININE INCREASED [None]
  - CARDIOGENIC SHOCK [None]
  - ACTIVATED PARTIAL THROMBOPLASTIN TIME PROLONGED [None]
  - NUTRITIONAL CONDITION ABNORMAL [None]
  - HAEMOPTYSIS [None]
  - DYSPNOEA [None]
  - CHEST X-RAY ABNORMAL [None]
